FAERS Safety Report 8880441 (Version 1)
Quarter: 2012Q4

REPORT INFORMATION
  Report Type: 
  Country: GB (occurrence: GB)
  Receive Date: 20121101
  Receipt Date: 20121101
  Transmission Date: 20130627
  Serious: Yes (Other)
  Sender: FDA-Public Use
  Company Number: PHHO2012GB015722

PATIENT
  Age: 65 Year
  Sex: Female

DRUGS (2)
  1. DICLOFENAC [Suspect]
     Indication: OSTEOARTHRITIS
     Dosage: 50 mg, TID
     Route: 048
     Dates: start: 20101118
  2. ASPIRIN [Suspect]

REACTIONS (2)
  - Sensation of foreign body [Unknown]
  - Meningioma [Not Recovered/Not Resolved]
